FAERS Safety Report 13120275 (Version 1)
Quarter: 2017Q1

REPORT INFORMATION
  Report Type: Other
  Country: JP (occurrence: JP)
  Receive Date: 20170117
  Receipt Date: 20170117
  Transmission Date: 20170428
  Serious: Yes (Hospitalization)
  Sender: FDA-Public Use
  Company Number: JP-LUPIN PHARMACEUTICALS INC.-2017-00241

PATIENT
  Age: 19 Year
  Sex: Female

DRUGS (1)
  1. MINOCYCLINE [Suspect]
     Active Substance: MINOCYCLINE\MINOCYCLINE HYDROCHLORIDE
     Indication: ATYPICAL PNEUMONIA
     Route: 065

REACTIONS (3)
  - Human herpesvirus 6 infection [Recovered/Resolved]
  - Encephalomyelitis [Recovered/Resolved]
  - Drug reaction with eosinophilia and systemic symptoms [Unknown]
